FAERS Safety Report 8438011-1 (Version None)
Quarter: 2012Q2

REPORT INFORMATION
  Report Type: 
  Country: None (occurrence: None)
  Receive Date: 20120614
  Receipt Date: 20120604
  Transmission Date: 20120825
  Serious: No
  Sender: FDA-Public Use
  Company Number: US-AMGEN-USASP2012031605

PATIENT
  Age: 78 Year
  Sex: Female

DRUGS (12)
  1. PROLIA [Suspect]
     Indication: OSTEOPOROSIS POSTMENOPAUSAL
     Dosage: UNK
  2. VITAMIN D [Concomitant]
     Dosage: UNK
  3. XANAX [Concomitant]
     Dosage: UNK
  4. PROLIA [Suspect]
  5. CALCIUM                            /00060701/ [Concomitant]
     Dosage: UNK
  6. CALCIUM                            /00060701/ [Concomitant]
     Dosage: UNK
  7. IBUPROFEN [Concomitant]
  8. ASPIRIN [Concomitant]
     Dosage: UNK
  9. ASPIRIN [Concomitant]
     Dosage: UNK
  10. VITAMIN D [Concomitant]
  11. XANAX [Concomitant]
     Dosage: UNK
  12. STATIN                             /00036501/ [Concomitant]

REACTIONS (5)
  - DENTAL CARIES [None]
  - ARTHRALGIA [None]
  - PAIN IN JAW [None]
  - ANXIETY [None]
  - ABDOMINAL PAIN UPPER [None]
